FAERS Safety Report 10261252 (Version 1)
Quarter: 2014Q2

REPORT INFORMATION
  Report Type: Spontaneous
  Country: US (occurrence: US)
  Receive Date: 20140626
  Receipt Date: 20140626
  Transmission Date: 20141212
  Serious: Yes (Hospitalization, Other)
  Sender: FDA-Public Use
  Company Number: US-ELI_LILLY_AND_COMPANY-US201406005447

PATIENT
  Sex: Female

DRUGS (2)
  1. HUMALOG LISPRO [Suspect]
     Indication: TYPE 2 DIABETES MELLITUS
     Dosage: 5 U, PRN
     Route: 065
  2. LANTUS [Concomitant]
     Route: 065

REACTIONS (9)
  - Cardiac failure [Unknown]
  - Localised infection [Unknown]
  - Skin ulcer [Unknown]
  - Gait disturbance [Unknown]
  - Fall [Unknown]
  - Insomnia [Unknown]
  - Mental impairment [Unknown]
  - Fatigue [Unknown]
  - Hunger [Unknown]
